FAERS Safety Report 8101066-8 (Version None)
Quarter: 2012Q1

REPORT INFORMATION
  Report Type: 
  Country: None (occurrence: None)
  Receive Date: 20120129
  Receipt Date: 20110906
  Transmission Date: 20120608
  Serious: No
  Sender: FDA-Public Use
  Company Number: US-ABBOTT-11P-163-0852701-00

PATIENT
  Sex: Male
  Weight: 63.56 kg

DRUGS (9)
  1. IRON [Concomitant]
     Indication: SUPPLEMENTATION THERAPY
  2. PREDNISONE TAB [Concomitant]
     Indication: CROHN'S DISEASE
  3. PENTASA [Concomitant]
     Indication: CROHN'S DISEASE
  4. HUMIRA [Suspect]
     Indication: CROHN'S DISEASE
     Dates: start: 20110823
  5. REMICADE [Suspect]
     Indication: CROHN'S DISEASE
     Dates: start: 20091001, end: 20110601
  6. VITAMIN TAB [Concomitant]
     Indication: VITAMIN SUPPLEMENTATION
  7. HUMIRA [Suspect]
     Dates: start: 20110809, end: 20110809
  8. HUMIRA [Suspect]
     Indication: CROHN'S DISEASE
     Dates: start: 20110726, end: 20110726
  9. PAROXETINE [Concomitant]
     Indication: DEPRESSION

REACTIONS (10)
  - NAUSEA [None]
  - VOMITING [None]
  - FISTULA [None]
  - ASTHENIA [None]
  - GASTROINTESTINAL OEDEMA [None]
  - GASTROINTESTINAL INFECTION [None]
  - ABDOMINAL DISTENSION [None]
  - CROHN'S DISEASE [None]
  - FREQUENT BOWEL MOVEMENTS [None]
  - FATIGUE [None]
